FAERS Safety Report 9782117 (Version 1)
Quarter: 2013Q4

REPORT INFORMATION
  Report Type: Report from Study
  Country: US (occurrence: US)
  Receive Date: 20131226
  Receipt Date: 20131226
  Transmission Date: 20140711
  Serious: Yes (Other)
  Sender: FDA-Public Use
  Company Number: US-BRISTOL-MYERS SQUIBB COMPANY-19928662

PATIENT
  Age: 28 Year
  Sex: Female
  Weight: 66 kg

DRUGS (1)
  1. IPILIMUMAB [Suspect]
     Indication: MALIGNANT MELANOMA
     Dosage: OVER 90 MIN, 4 DOSES.?Q 12 WEEKS ON WEEKS 24, 36, 48 AND 60?200 MG, LAST DOSE ON 22-JUL-13.
     Route: 042
     Dates: start: 20130610

REACTIONS (1)
  - Hypophosphataemia [Recovered/Resolved]
